FAERS Safety Report 23188830 (Version 3)
Quarter: 2024Q4

REPORT INFORMATION
  Report Type: Spontaneous
  Country: US (occurrence: US)
  Receive Date: 20231115
  Receipt Date: 20241121
  Transmission Date: 20250115
  Serious: No
  Sender: PFIZER
  Company Number: US-PFIZER INC-2019529484

PATIENT
  Age: 65 Year
  Sex: Female

DRUGS (1)
  1. PREMPRO [Suspect]
     Active Substance: ESTROGENS, CONJUGATED\MEDROXYPROGESTERONE ACETATE
     Indication: Hormone replacement therapy
     Dosage: 0.625 MG /5MG DAILY
     Route: 048

REACTIONS (4)
  - Anxiety [Unknown]
  - Product dispensing error [Unknown]
  - Product prescribing error [Unknown]
  - Intercepted product prescribing error [Unknown]
